FAERS Safety Report 5413235-6 (Version None)
Quarter: 2007Q3

REPORT INFORMATION
  Report Type: 
  Country: None (occurrence: None)
  Receive Date: 20070814
  Receipt Date: 20070806
  Transmission Date: 20080115
  Serious: Yes (Other)
  Sender: FDA-Public Use
  Company Number: PHBS2007JP12879

PATIENT
  Age: 62 Year
  Sex: Female
  Weight: 64 kg

DRUGS (7)
  1. LOCHOL [Suspect]
     Indication: HYPERCHOLESTEROLAEMIA
     Dosage: 30 MG/DAY
     Route: 048
     Dates: start: 20070417, end: 20070731
  2. ACTOS [Suspect]
     Dosage: 7.5 MG/DAY
     Route: 048
     Dates: start: 20060101
  3. EUGLUCON [Suspect]
     Dosage: 1.25 MG/DAY
     Route: 048
     Dates: start: 19980507
  4. NORVASC [Suspect]
     Dosage: 2.5 MG/DAY
     Route: 048
     Dates: start: 19950131
  5. LENDORMIN [Suspect]
     Dosage: UNK, UNK
     Route: 048
  6. VOGLIBOSE [Suspect]
     Dosage: 0.6 MG/DAY
     Route: 048
     Dates: start: 20050101
  7. DIOVAN [Suspect]
     Indication: HYPERTENSION
     Dosage: 80 MG/DAY
     Route: 048
     Dates: start: 20070626, end: 20070802

REACTIONS (6)
  - BLOOD CHOLESTEROL INCREASED [None]
  - HAEMATURIA [None]
  - HIGH DENSITY LIPOPROTEIN DECREASED [None]
  - HYPERTRIGLYCERIDAEMIA [None]
  - LOW DENSITY LIPOPROTEIN INCREASED [None]
  - OCCULT BLOOD POSITIVE [None]
